FAERS Safety Report 9967277 (Version 2)
Quarter: 2014Q1

REPORT INFORMATION
  Report Type: Report from Study
  Country: US (occurrence: US)
  Receive Date: 20140305
  Receipt Date: 20140305
  Transmission Date: 20141002
  Serious: No
  Sender: FDA-Public Use
  Company Number: US-ABBVIE-13P-163-1096397-00

PATIENT
  Age: 35 Year
  Sex: Female

DRUGS (4)
  1. HUMIRA [Suspect]
     Indication: COLITIS ULCERATIVE
     Dates: start: 20130417, end: 20130417
  2. HUMIRA [Suspect]
     Dates: start: 20130502, end: 20130502
  3. HUMIRA [Suspect]
     Dates: start: 20130517
  4. ASACOL [Concomitant]
     Indication: PRODUCT USED FOR UNKNOWN INDICATION

REACTIONS (4)
  - Fatigue [Not Recovered/Not Resolved]
  - Injection site pain [Not Recovered/Not Resolved]
  - Device malfunction [Not Recovered/Not Resolved]
  - Incorrect dose administered [Not Recovered/Not Resolved]
